FAERS Safety Report 20922312 (Version 1)
Quarter: 2022Q2

REPORT INFORMATION
  Report Type: Spontaneous
  Country: US (occurrence: US)
  Receive Date: 20220607
  Receipt Date: 20220607
  Transmission Date: 20220721
  Serious: No
  Sender: FDA-Public Use
  Company Number: US-BRISTOL-MYERS SQUIBB COMPANY-2022-038385

PATIENT
  Age: 78 Year
  Sex: Female
  Weight: 80.7 kg

DRUGS (1)
  1. REVLIMID [Suspect]
     Active Substance: LENALIDOMIDE
     Indication: Plasma cell myeloma
     Route: 048
     Dates: start: 20201001, end: 20220426

REACTIONS (1)
  - Exfoliative rash [Unknown]

NARRATIVE: CASE EVENT DATE: 20220401
